FAERS Safety Report 10951227 (Version 6)
Quarter: 2015Q2

REPORT INFORMATION
  Report Type: Spontaneous
  Country: IT (occurrence: IT)
  Receive Date: 20150324
  Receipt Date: 20150513
  Transmission Date: 20150821
  Serious: Yes (Hospitalization)
  Sender: FDA-Public Use
  Company Number: PHHY2015IT023965

PATIENT
  Age: 41 Year
  Sex: Female

DRUGS (3)
  1. GILENYA [Suspect]
     Active Substance: FINGOLIMOD HYDROCHLORIDE
     Indication: RELAPSING-REMITTING MULTIPLE SCLEROSIS
     Dosage: 0.5 MG, QD
     Route: 048
     Dates: start: 20130801, end: 20150122
  2. CITALOPRAM [Concomitant]
     Active Substance: CITALOPRAM HYDROBROMIDE
     Indication: DEPRESSION
     Dosage: 8 DRP, QD
     Route: 048
  3. LIORESAL [Concomitant]
     Active Substance: BACLOFEN
     Indication: HYPERTONIA
     Dosage: 1 DF, BID
     Route: 048

REACTIONS (8)
  - Hemiplegia [Unknown]
  - IIIrd nerve paresis [Unknown]
  - Dysarthria [Unknown]
  - Multiple sclerosis relapse [Not Recovered/Not Resolved]
  - Bradyphrenia [Unknown]
  - Cognitive disorder [Unknown]
  - Hypokinesia [Unknown]
  - Frontotemporal dementia [Unknown]

NARRATIVE: CASE EVENT DATE: 20150122
